FAERS Safety Report 25213394 (Version 1)
Quarter: 2025Q2

REPORT INFORMATION
  Report Type: Spontaneous
  Country: US (occurrence: None)
  Receive Date: 20250417
  Receipt Date: 20250417
  Transmission Date: 20250716
  Serious: No
  Sender: FDA-CTU
  Company Number: None

PATIENT
  Age: 82 Year
  Sex: Male
  Weight: 88 kg

DRUGS (1)
  1. APIXABAN [Suspect]
     Active Substance: APIXABAN
     Indication: Atrial fibrillation
     Route: 048

REACTIONS (2)
  - Haematuria [None]
  - Escherichia urinary tract infection [None]

NARRATIVE: CASE EVENT DATE: 20250305
